FAERS Safety Report 4590051-9 (Version None)
Quarter: 2005Q1

REPORT INFORMATION
  Report Type: 
  Country: None (occurrence: None)
  Receive Date: 20050224
  Receipt Date: 20050215
  Transmission Date: 20050727
  Serious: Yes (Hospitalization, Other)
  Sender: FDA-Public Use
  Company Number: US-JNJFOC-20041101091

PATIENT
  Sex: Female
  Weight: 70.31 kg

DRUGS (9)
  1. REMICADE [Suspect]
     Route: 042
  2. REMICADE [Suspect]
     Indication: CROHN'S DISEASE
     Dosage: TOTAL OF 4 TREATMENTS.
     Route: 042
  3. METHOTREXATE [Suspect]
     Indication: CROHN'S DISEASE
     Dosage: ON HOLD
  4. ASACOL [Concomitant]
     Indication: CROHN'S DISEASE
  5. SOLU-CORTEF [Concomitant]
     Route: 042
  6. SOLU-CORTEF [Concomitant]
     Indication: PREMEDICATION
     Route: 042
  7. NEXIUM [Concomitant]
  8. BENTYL [Concomitant]
     Dosage: AS NECESSARY
  9. PHENERGAN [Concomitant]

REACTIONS (5)
  - BLOOD PRESSURE DECREASED [None]
  - FATIGUE [None]
  - OOPHORECTOMY [None]
  - OVARIAN CYST [None]
  - SUICIDAL IDEATION [None]
